FAERS Safety Report 8216847-X (Version None)
Quarter: 2012Q1

REPORT INFORMATION
  Report Type: 
  Country: None (occurrence: None)
  Receive Date: 20120316
  Receipt Date: 20120307
  Transmission Date: 20120608
  Serious: Yes (Other)
  Sender: FDA-Public Use
  Company Number: BR-ASTRAZENECA-2011SE68291

PATIENT
  Age: 42 Year
  Sex: Female
  Weight: 67 kg

DRUGS (2)
  1. NEXIUM [Suspect]
     Route: 048
     Dates: start: 20110801, end: 20120101
  2. NEXIUM [Suspect]
     Indication: GASTRITIS
     Route: 048
     Dates: start: 20110401, end: 20110601

REACTIONS (4)
  - GASTRITIS [None]
  - THERAPY CESSATION [None]
  - HELICOBACTER INFECTION [None]
  - OESOPHAGEAL MASS [None]
